FAERS Safety Report 7630226-5 (Version None)
Quarter: 2011Q3

REPORT INFORMATION
  Report Type: 
  Country: None (occurrence: None)
  Receive Date: 20110722
  Receipt Date: 20110711
  Transmission Date: 20111222
  Serious: Yes (Hospitalization, Other)
  Sender: FDA-Public Use
  Company Number: US-BAYER-2011-026299

PATIENT
  Age: 48 Year
  Sex: Female
  Weight: 54.422 kg

DRUGS (8)
  1. MULTI-VITAMIN [Concomitant]
  2. YAZ [Suspect]
     Indication: MENORRHAGIA
  3. LUPRON [Concomitant]
     Indication: VAGINAL HAEMORRHAGE
  4. YAZ [Suspect]
     Indication: ORAL CONTRACEPTION
     Dosage: UNK
     Dates: start: 20081224, end: 20090312
  5. DIETARY SUPPLEMENTS [Concomitant]
  6. VENOFER [Concomitant]
  7. TYLENOL W/ CODEINE NO. 3 [Concomitant]
  8. ARIXTRA [Concomitant]

REACTIONS (2)
  - DEEP VEIN THROMBOSIS [None]
  - PULMONARY EMBOLISM [None]
